FAERS Safety Report 8173490-9 (Version None)
Quarter: 2012Q1

REPORT INFORMATION
  Report Type: 
  Country: None (occurrence: None)
  Receive Date: 20120224
  Receipt Date: 20120215
  Transmission Date: 20120608
  Serious: Yes (Hospitalization, Other)
  Sender: FDA-Public Use
  Company Number: AUR-APL-2012-01007

PATIENT
  Age: 56 Year
  Sex: Female
  Weight: 65.9 kg

DRUGS (13)
  1. METOPROLOL TARTRATE [Suspect]
     Indication: HYPERTENSION
     Dosage: 25 MG (25 MG, 1 IN 1 D), ORAL
     Route: 048
     Dates: start: 20110916
  2. AXITINIB (AXITINIB) [Suspect]
     Indication: METASTATIC MALIGNANT MELANOMA
     Dosage: 2 DOSAGE FORMS (1 DOSAGE FORMS, 2 IN 1 D), ORAL
     Route: 048
     Dates: start: 20111130
  3. BENADRYL [Concomitant]
  4. CELEBRIX (CELECOXIB) [Suspect]
     Indication: MENOPAUSE
     Dosage: 200 MG (200 MG, 1 IN 1 D), ORAL
     Route: 048
     Dates: start: 19970101, end: 20111101
  5. WELLBUTRIN [Concomitant]
  6. PREMPRO [Suspect]
     Indication: ARTHRITIS
     Dosage: 0.625 MG/2.5 MG (1 IN 1 D), ORAL
     Route: 048
     Dates: start: 20070101
  7. ZOFRAN [Concomitant]
  8. MS CONTIN [Concomitant]
  9. MEGACE [Concomitant]
  10. CARBOPLATIN [Suspect]
     Indication: PRODUCT USED FOR UNKNOWN INDICATION
     Dosage: 26.9048 MG (565 MG, 1 IN 3 WK), INTRAVENOUS
     Route: 042
     Dates: start: 20111020, end: 20111020
  11. PACLITAXEL [Suspect]
     Indication: PRODUCT USED FOR UNKNOWN INDICATION
     Dosage: 10.2381 MG (215 MG, 1 IN 3 WK), INTRAVENOUS
     Route: 042
     Dates: start: 20111020, end: 20111020
  12. MEGACE [Suspect]
     Indication: DECREASED APPETITE
     Dosage: 5 CC (1 IN 1 D), ORAL
     Route: 048
     Dates: start: 20110927
  13. CELEBREX [Concomitant]

REACTIONS (4)
  - UTERINE LEIOMYOMA [None]
  - GASTROOESOPHAGEAL REFLUX DISEASE [None]
  - ANAEMIA [None]
  - HYPOKALAEMIA [None]
